FAERS Safety Report 7246341-4 (Version None)
Quarter: 2011Q1

REPORT INFORMATION
  Report Type: 
  Country: None (occurrence: None)
  Receive Date: 20110126
  Receipt Date: 20110125
  Transmission Date: 20110831
  Serious: Yes (Hospitalization)
  Sender: FDA-Public Use
  Company Number: US-ABBOTT-11P-163-0699718-00

PATIENT
  Sex: Female
  Weight: 63.56 kg

DRUGS (24)
  1. HYDROCODONE [Concomitant]
     Dosage: 5/325 MILLIGRAMS
  2. FISH OIL [Concomitant]
     Indication: MEDICAL DIET
  3. METHYLPREDNISOLONE [Suspect]
     Indication: PSORIATIC ARTHROPATHY
  4. MULTI-VITAMIN [Concomitant]
     Indication: VITAMIN SUPPLEMENTATION
  5. GLUCOSAMINE [Concomitant]
     Indication: MEDICAL DIET
  6. HUMIRA [Suspect]
     Indication: PSORIATIC ARTHROPATHY
     Dates: start: 20090101, end: 20100201
  7. CALCIUM [Concomitant]
     Indication: MINERAL SUPPLEMENTATION
  8. HYDROCODONE [Concomitant]
     Indication: PAIN
     Dosage: 2.5/500 MILLIGRAMS
  9. SINGULAIR [Concomitant]
     Indication: HYPERSENSITIVITY
  10. ZYRTEC [Concomitant]
     Indication: HYPERSENSITIVITY
  11. ZOCOR [Concomitant]
     Indication: BLOOD CHOLESTEROL INCREASED
     Dates: start: 20100101
  12. METOPROLOL TARTRATE [Concomitant]
     Indication: HYPERTENSION
  13. DIGOXIN [Concomitant]
     Indication: HEART RATE INCREASED
  14. LUNESTA [Concomitant]
     Indication: FIBROMYALGIA
  15. FENOFIBRATE [Concomitant]
     Indication: BLOOD CHOLESTEROL INCREASED
     Dates: start: 20100101
  16. SAVELLA [Concomitant]
     Indication: FIBROMYALGIA
  17. DECONGESTANT [Concomitant]
     Indication: HYPERSENSITIVITY
  18. ASTEPRO [Concomitant]
     Indication: PRODUCT USED FOR UNKNOWN INDICATION
     Route: 045
  19. ESTEROL [Concomitant]
     Indication: MENOPAUSE
  20. PANTOPRAZOLE [Concomitant]
     Indication: ABDOMINAL DISCOMFORT
  21. VITAMIN D [Concomitant]
     Indication: VITAMIN SUPPLEMENTATION
  22. HUMIRA [Suspect]
     Dates: start: 20101101
  23. CLONIDINE [Concomitant]
     Indication: HYPERTENSION
  24. LYRICA [Concomitant]
     Indication: FIBROMYALGIA

REACTIONS (11)
  - APHASIA [None]
  - PULMONARY EMBOLISM [None]
  - DIPLOPIA [None]
  - UPPER RESPIRATORY TRACT INFECTION [None]
  - VISUAL ACUITY REDUCED [None]
  - PAIN IN EXTREMITY [None]
  - DIABETES MELLITUS [None]
  - DRY EYE [None]
  - DYSPNOEA EXERTIONAL [None]
  - BLOOD CHOLESTEROL INCREASED [None]
  - DYSPNOEA [None]
